FAERS Safety Report 12204923 (Version 1)
Quarter: 2016Q1

REPORT INFORMATION
  Report Type: Spontaneous
  Country: US (occurrence: None)
  Receive Date: 20160322
  Receipt Date: 20160322
  Transmission Date: 20160526
  Serious: Yes (Hospitalization)
  Sender: FDA-Public Use
  Company Number: None

PATIENT
  Age: 54 Year
  Sex: Female
  Weight: 117.94 kg

DRUGS (5)
  1. STELARA [Suspect]
     Active Substance: USTEKINUMAB
     Indication: PSORIATIC ARTHROPATHY
     Dosage: SYRINGE 1 INJECTION EVERY 3 MONTHS INJECTION
     Dates: start: 20151001, end: 20160201
  2. FISH OIL [Concomitant]
     Active Substance: FISH OIL
  3. CALCIUM 600 + D3 [Concomitant]
  4. CPAP [Concomitant]
     Active Substance: DEVICE
  5. VITAMIN E [Concomitant]
     Active Substance: .ALPHA.-TOCOPHEROL

REACTIONS (2)
  - Pneumonia [None]
  - Bronchitis [None]

NARRATIVE: CASE EVENT DATE: 20160229
